FAERS Safety Report 20453825 (Version 3)
Quarter: 2022Q2

REPORT INFORMATION
  Report Type: Spontaneous
  Country: US (occurrence: US)
  Receive Date: 20220210
  Receipt Date: 20220505
  Transmission Date: 20220721
  Serious: Yes (Death, Hospitalization, Other)
  Sender: FDA-Public Use
  Company Number: US-AVEO ONCOLOGY-2022-AVEO-US000041

PATIENT

DRUGS (31)
  1. FOTIVDA [Suspect]
     Active Substance: TIVOZANIB HYDROCHLORIDE
     Indication: Renal cell carcinoma
     Dosage: 1.34 MG, DAILY ON DAYS 1-21 EVERY 28 DAYS
     Route: 048
     Dates: start: 20210920
  2. REMERON [Concomitant]
     Active Substance: MIRTAZAPINE
     Dosage: UNK
  3. OMEPRAZOLE [Concomitant]
     Active Substance: OMEPRAZOLE
     Dosage: 20 MG, BID AC BREAKFAST AND DINNER
     Route: 048
     Dates: start: 20220129
  4. ZOFRAN [Concomitant]
     Active Substance: ONDANSETRON HYDROCHLORIDE
     Dosage: UNK
  5. METFORMIN [Concomitant]
     Active Substance: METFORMIN HYDROCHLORIDE
     Dosage: UNK
  6. ELIQUIS [Concomitant]
     Active Substance: APIXABAN
     Dosage: 2.5 MG, BID
     Dates: start: 20220129
  7. VITAMIN B12 [Concomitant]
     Active Substance: CYANOCOBALAMIN
     Dosage: UNK
  8. DEXAMETHASONE [Concomitant]
     Active Substance: DEXAMETHASONE
     Dosage: 0.5 MG
  9. DEXAMETHASONE [Concomitant]
     Active Substance: DEXAMETHASONE
     Dosage: 2 MG, DAILY
     Route: 048
     Dates: start: 20220129
  10. COLACE CLEAR [Concomitant]
     Active Substance: DOCUSATE SODIUM
     Dosage: 100 MG, BID
     Route: 048
     Dates: start: 20220129
  11. FOLATE SODIUM [Concomitant]
     Active Substance: FOLATE SODIUM
     Dosage: UNK
  12. SYNTHROID [Concomitant]
     Active Substance: LEVOTHYROXINE SODIUM
     Dosage: 75 UG
  13. CALMOSEPTINE [Concomitant]
     Active Substance: MENTHOL\ZINC OXIDE
     Dosage: UNK
  14. GABAPENTIN [Concomitant]
     Active Substance: GABAPENTIN
     Dosage: 200 MG, BID
     Route: 048
  15. INSULIN GLARGINE [Concomitant]
     Active Substance: INSULIN GLARGINE
     Dosage: 10 U, BID HS
  16. INSULIN LISPRO [Concomitant]
     Active Substance: INSULIN LISPRO
     Dosage: 2-12 U, BID AC/HS
     Route: 058
  17. INSULIN LISPRO [Concomitant]
     Active Substance: INSULIN LISPRO
     Dosage: 8 U, TID WITH MEALS
     Route: 058
  18. MAGNESIUM CHLORIDE [Concomitant]
     Active Substance: MAGNESIUM CHLORIDE
     Dosage: 64 MG, DAILY
     Route: 048
  19. MICONAZOLE [Concomitant]
     Active Substance: MICONAZOLE
     Dosage: 2 %, BID
     Route: 061
  20. TAMSULOSIN HYDROCHLORIDE [Concomitant]
     Active Substance: TAMSULOSIN HYDROCHLORIDE
     Dosage: 0.4 MG, DAILY
     Route: 048
  21. ACETAMINOPHEN [Concomitant]
     Active Substance: ACETAMINOPHEN
     Dosage: 650 MG, Q6HR PRN
  22. BISACODYL [Concomitant]
     Active Substance: BISACODYL
     Dosage: 10 MG, DAILY PRN
     Route: 054
  23. GUAIFENESIN [Concomitant]
     Active Substance: GUAIFENESIN
     Dosage: 100 MG, Q6HR
     Route: 048
  24. NICE [Concomitant]
     Active Substance: MENTHOL
     Dosage: UNK
  25. CALMOSEPTINE [Concomitant]
     Active Substance: MENTHOL\ZINC OXIDE
     Dosage: UNK, PRN
     Route: 061
  26. PERCOCET [Concomitant]
     Active Substance: ACETAMINOPHEN\OXYCODONE HYDROCHLORIDE
     Dosage: 10-325 MG
     Route: 048
  27. POLYETHYLENE GLYCOL [Concomitant]
     Active Substance: POLYETHYLENE GLYCOL
     Dosage: 17 G, DAILY PRN
     Route: 048
  28. CABOMETYX [Concomitant]
     Active Substance: CABOZANTINIB S-MALATE
     Dosage: 40 MG, DAILY
  29. PROLIA [Concomitant]
     Active Substance: DENOSUMAB
     Dosage: Q6 MONTHS
  30. LOKELMA [Concomitant]
     Active Substance: SODIUM ZIRCONIUM CYCLOSILICATE
     Dosage: UNK
  31. ENOXAPARIN SODIUM [Concomitant]
     Active Substance: ENOXAPARIN SODIUM
     Dosage: 40 MG, DAILY

REACTIONS (25)
  - Death [Fatal]
  - Cellulitis [Unknown]
  - Pneumonia viral [Unknown]
  - Sepsis [Unknown]
  - Urosepsis [Unknown]
  - Asthenia [Recovering/Resolving]
  - Klebsiella sepsis [Unknown]
  - Urinary tract infection [Unknown]
  - Dyspnoea [Unknown]
  - Emphysematous cystitis [Unknown]
  - Dehydration [Unknown]
  - Hypotension [Unknown]
  - Dysphonia [Unknown]
  - Fatigue [Unknown]
  - Thrombocytopenia [Unknown]
  - COVID-19 [Unknown]
  - Abdominal discomfort [Unknown]
  - Oropharyngeal pain [Unknown]
  - Feeling abnormal [Unknown]
  - Odynophagia [Recovering/Resolving]
  - Skin fissures [Unknown]
  - Blister [Unknown]
  - Hyperkeratosis [Unknown]
  - Dry skin [Unknown]
  - Constipation [Unknown]

NARRATIVE: CASE EVENT DATE: 20210101
